FAERS Safety Report 14692685 (Version 2)
Quarter: 2018Q2

REPORT INFORMATION
  Report Type: Spontaneous
  Country: US (occurrence: US)
  Receive Date: 20180329
  Receipt Date: 20180501
  Transmission Date: 20180711
  Serious: Yes (Hospitalization)
  Sender: FDA-Public Use
  Company Number: US-ROCHE-2094678

PATIENT
  Age: 46 Year
  Sex: Female
  Weight: 60.3 kg

DRUGS (2)
  1. OCREVUS [Suspect]
     Active Substance: OCRELIZUMAB
     Indication: MULTIPLE SCLEROSIS
     Dosage: ONGOING:YES
     Route: 042
     Dates: start: 20180122
  2. OCREVUS [Suspect]
     Active Substance: OCRELIZUMAB
     Dosage: ONGOING:NO
     Route: 042
     Dates: start: 20180205, end: 20180205

REACTIONS (10)
  - Haemoptysis [Recovered/Resolved]
  - Pain [Unknown]
  - Pneumonia [Unknown]
  - Chest pain [Unknown]
  - Headache [Unknown]
  - Oropharyngeal pain [Unknown]
  - Musculoskeletal pain [Unknown]
  - Pyrexia [Unknown]
  - Dysphonia [Unknown]
  - Eye disorder [Unknown]

NARRATIVE: CASE EVENT DATE: 20180122
